FAERS Safety Report 9814684 (Version 2)
Quarter: 2014Q1

REPORT INFORMATION
  Report Type: Spontaneous
  Country: US (occurrence: US)
  Receive Date: 20140113
  Receipt Date: 20140113
  Transmission Date: 20141002
  Serious: Yes (Hospitalization)
  Sender: FDA-Public Use
  Company Number: US-SANOFI-AVENTIS-2012SA086735

PATIENT
  Age: 39 Year
  Sex: Female
  Weight: 48 kg

DRUGS (14)
  1. DOCETAXEL [Suspect]
     Indication: HER-2 POSITIVE BREAST CANCER
     Dosage: FORM- VIAL, TOTAL DOSE- 115 MG
     Route: 042
     Dates: start: 20100916
  2. CARBOPLATIN [Suspect]
     Indication: HER-2 POSITIVE BREAST CANCER
     Dosage: FORM- VIAL, DOSE 6 AUC, TOTAL DOSE-620 MG
     Route: 042
     Dates: start: 20100916
  3. TRASTUZUMAB [Concomitant]
     Indication: HER-2 POSITIVE BREAST CANCER
     Dosage: FORM- VIAL, TOTAL DOSE- 385 MG
     Route: 042
     Dates: start: 20100916
  4. BEVACIZUMAB [Concomitant]
     Indication: HER-2 POSITIVE BREAST CANCER
     Dosage: FORM- VIAL, TOTAL DOSE- 721 MG
     Route: 042
     Dates: start: 20100916
  5. VALTREX [Concomitant]
     Dates: start: 20100920
  6. OTHER AGENTS FOR LOCAL ORAL TREATMENT [Concomitant]
     Dates: start: 20100924
  7. XANAX [Concomitant]
     Dates: start: 20100816
  8. AMBIEN [Concomitant]
     Dates: start: 20100809
  9. ATIVAN [Concomitant]
     Dates: start: 20100915
  10. DEXAMETHASONE [Concomitant]
     Dates: start: 20100915
  11. PAXIL [Concomitant]
     Dates: start: 20100924
  12. PROMETHAZINE [Concomitant]
     Dates: start: 20100916
  13. PROTONIX [Concomitant]
     Dates: start: 20100922
  14. LEVAQUIN [Concomitant]
     Route: 048
     Dates: start: 20100923

REACTIONS (1)
  - Neutropenia [Recovered/Resolved]
